FAERS Safety Report 20681038 (Version 4)
Quarter: 2022Q3

REPORT INFORMATION
  Report Type: Spontaneous
  Country: US (occurrence: US)
  Receive Date: 20220406
  Receipt Date: 20220930
  Transmission Date: 20221027
  Serious: Yes (Hospitalization, Other)
  Sender: FDA-Public Use
  Company Number: US-PFIZER INC-202100958046

PATIENT
  Age: 71 Year
  Sex: Female
  Weight: 55.79 kg

DRUGS (11)
  1. IBRANCE [Suspect]
     Active Substance: PALBOCICLIB
     Indication: Breast cancer metastatic
     Dosage: 75 MG
  2. IBRANCE [Suspect]
     Active Substance: PALBOCICLIB
     Indication: Bone cancer
     Dosage: 75 MG, CYCLIC (ONE TABLET PER DAY FOR 3 WEEKS AND THEN OFF ONE WEEK; THE REPEATS THAT CYCLE)
     Dates: start: 20210314, end: 20210414
  3. IBRANCE [Suspect]
     Active Substance: PALBOCICLIB
     Dosage: 75 MG, CYCLIC (75MG TABLET TAKEN ONCE DAILY FOR 21 DAYS, OFF FOR 7 DAYS)
     Dates: start: 20210314
  4. METOPROLOL SUCCINATE [Concomitant]
     Active Substance: METOPROLOL SUCCINATE
     Dosage: 50 MG
  5. ELIQUIS [Concomitant]
     Active Substance: APIXABAN
     Dosage: 5 MG, 2X/DAY
  6. ATORVASTATIN [Concomitant]
     Active Substance: ATORVASTATIN
     Dosage: 80 MG
  7. LANTUS [Concomitant]
     Active Substance: INSULIN GLARGINE
     Dosage: 14 IU, 1X/DAY (ONCE IN THE MORNING)
  8. HUMALOG [Concomitant]
     Active Substance: INSULIN LISPRO
     Dosage: (9 UNITS IN MORNING AND 10 UNITS IN EVENING)
  9. LETROZOLE [Concomitant]
     Active Substance: LETROZOLE
     Dosage: 2.5 MG, 1X/DAY
  10. LISINOPRIL [Concomitant]
     Active Substance: LISINOPRIL
     Dosage: 40 MG, 1X/DAY
  11. AMLODIPINE [Concomitant]
     Active Substance: AMLODIPINE BESYLATE
     Dosage: UNK

REACTIONS (17)
  - Atrial fibrillation [Recovered/Resolved with Sequelae]
  - Anaemia [Unknown]
  - White blood cell count decreased [Recovering/Resolving]
  - Illness [Recovering/Resolving]
  - Sleep apnoea syndrome [Unknown]
  - Nausea [Recovering/Resolving]
  - Inflammatory bowel disease [Recovering/Resolving]
  - Cardiac operation [Recovered/Resolved with Sequelae]
  - Cardiac pacemaker insertion [Not Recovered/Not Resolved]
  - Product dose omission issue [Unknown]
  - Fatigue [Recovering/Resolving]
  - Dysstasia [Unknown]
  - Loss of personal independence in daily activities [Recovering/Resolving]
  - Weight increased [Unknown]
  - Asthenia [Recovering/Resolving]
  - Dyspepsia [Recovering/Resolving]
  - Full blood count abnormal [Recovering/Resolving]

NARRATIVE: CASE EVENT DATE: 20210726
